FAERS Safety Report 5110447-6 (Version None)
Quarter: 2006Q3

REPORT INFORMATION
  Report Type: 
  Country: None (occurrence: None)
  Receive Date: 20060921
  Receipt Date: 20060911
  Transmission Date: 20061208
  Serious: Yes (Disabling)
  Sender: FDA-Public Use
  Company Number: PHNR2006AU01202

PATIENT
  Age: 77 Year
  Sex: Male

DRUGS (7)
  1. PREDNEFRIN FORTE [Concomitant]
     Route: 047
  2. ACIMAX [Concomitant]
     Dosage: UNK, UNK
  3. NORVASC [Concomitant]
     Dosage: UNK, UNK
  4. UREX [Concomitant]
  5. ZOMETA [Suspect]
     Indication: PROSTATE CANCER
     Dosage: 4 MG, QMO
     Dates: start: 20040910
  6. ZOMETA [Suspect]
     Dosage: 3 MG, QMO
  7. ZOMETA [Suspect]
     Dosage: 2 MG, QMO
     Dates: end: 20051121

REACTIONS (13)
  - BLOOD CREATININE INCREASED [None]
  - BONE DISORDER [None]
  - DENTAL CARIES [None]
  - DRY SOCKET [None]
  - DYSAESTHESIA [None]
  - HYPOAESTHESIA ORAL [None]
  - IMPAIRED HEALING [None]
  - JAW OPERATION [None]
  - OEDEMA MUCOSAL [None]
  - OSTEONECROSIS [None]
  - PAIN IN JAW [None]
  - SOFT TISSUE INFECTION [None]
  - TOOTH EXTRACTION [None]
